FAERS Safety Report 4577940-6 (Version None)
Quarter: 2005Q1

REPORT INFORMATION
  Report Type: 
  Country: None (occurrence: None)
  Receive Date: 20050209
  Receipt Date: 20050128
  Transmission Date: 20050727
  Serious: Yes (Death, Hospitalization)
  Sender: FDA-Public Use
  Company Number: 2004US001469

PATIENT
  Age: 52 Year
  Sex: Female

DRUGS (4)
  1. AMBISOME [Suspect]
     Indication: STAPHYLOCOCCAL INFECTION
     Dosage: 600.00 MG, UID/QD INTRAVENOUS
     Route: 042
     Dates: start: 20040617, end: 20040621
  2. AMBISOME [Suspect]
     Indication: STAPHYLOCOCCAL INFECTION
     Dosage: 600.00 MG, UID/QD INTRAVENOUS
     Route: 042
     Dates: start: 20040622, end: 20040722
  3. AMBISOME [Suspect]
     Indication: STAPHYLOCOCCAL INFECTION
     Dosage: 600.00 MG, UID/QD INTRAVENOUS
     Route: 042
     Dates: start: 20040727, end: 20040806
  4. AMILORIDE [Concomitant]

REACTIONS (9)
  - ACUTE MYELOID LEUKAEMIA [None]
  - DISEASE PROGRESSION [None]
  - DISEASE RECURRENCE [None]
  - FUNGAL SEPSIS [None]
  - LOWER RESPIRATORY TRACT INFECTION [None]
  - NEUTROPENIC SEPSIS [None]
  - PNEUMONIA [None]
  - RESPIRATORY TRACT INFECTION FUNGAL [None]
  - THERAPY NON-RESPONDER [None]
